FAERS Safety Report 22164956 (Version 3)
Quarter: 2023Q2

REPORT INFORMATION
  Report Type: Other
  Country: TW (occurrence: TW)
  Receive Date: 20230403
  Receipt Date: 20230608
  Transmission Date: 20230721
  Serious: Yes (Hospitalization)
  Sender: FDA-Public Use
  Company Number: TW-TOLMAR, INC.-23TW039843

PATIENT
  Age: 65 Year
  Sex: Male
  Weight: 109 kg

DRUGS (9)
  1. ELIGARD [Suspect]
     Active Substance: LEUPROLIDE ACETATE
     Indication: Prostate cancer
     Dosage: 22.5 MILLIGRAM, Q 3 MONTH
     Route: 058
     Dates: start: 20160907, end: 20170517
  2. ELIGARD [Suspect]
     Active Substance: LEUPROLIDE ACETATE
     Dosage: 22.5 MILLIGRAM, Q 3 MONTH
     Route: 058
     Dates: start: 20180418
  3. ENZALUTAMIDE [Suspect]
     Active Substance: ENZALUTAMIDE
     Indication: Prostate cancer
     Dosage: UNK, QD
     Route: 048
     Dates: start: 20170117, end: 20170926
  4. ENZALUTAMIDE [Suspect]
     Active Substance: ENZALUTAMIDE
     Dosage: UNK, QD
     Route: 048
     Dates: start: 20180904
  5. MIRABEGRON [Concomitant]
     Active Substance: MIRABEGRON
     Indication: Prostatic atrophy
     Dosage: 50 MILLIGRAM
     Dates: start: 20160614
  6. VESICARE [Concomitant]
     Active Substance: SOLIFENACIN SUCCINATE
     Indication: Prostatic atrophy
     Dosage: UNK
     Dates: start: 20160719
  7. FURSULTIAMINE [Concomitant]
     Active Substance: FURSULTIAMINE
     Indication: Prophylaxis
     Dosage: UNK
     Dates: start: 20160614
  8. ALGITAB [Concomitant]
     Indication: Prophylaxis
     Dosage: UNK
     Dates: start: 20160614
  9. IMIPRAMINE HYDROCHLORIDE [Concomitant]
     Active Substance: IMIPRAMINE HYDROCHLORIDE
     Indication: Prophylaxis
     Dosage: UNK
     Dates: start: 20160719

REACTIONS (1)
  - Cervical radiculopathy [Recovered/Resolved]

NARRATIVE: CASE EVENT DATE: 20180402
